FAERS Safety Report 9471589 (Version 1)
Quarter: 2013Q3

REPORT INFORMATION
  Report Type: Spontaneous
  Country: AU (occurrence: None)
  Receive Date: 20130819
  Receipt Date: 20130819
  Transmission Date: 20140515
  Serious: Yes (Hospitalization)
  Sender: FDA-Public Use
  Company Number: IPC201308-000316

PATIENT
  Age: 85 Year
  Sex: Male

DRUGS (2)
  1. FUROSEMIDE [Suspect]
  2. ENOXAPARIN [Suspect]

REACTIONS (4)
  - Purpura [None]
  - Haematuria [None]
  - Rectal haemorrhage [None]
  - Epistaxis [None]
